FAERS Safety Report 10650500 (Version 2)
Quarter: 2015Q2

REPORT INFORMATION
  Report Type: Spontaneous
  Country: US (occurrence: US)
  Receive Date: 20141214
  Receipt Date: 20150519
  Transmission Date: 20150821
  Serious: Yes (Other)
  Sender: FDA-Public Use
  Company Number: US-BAUSCH-SYM-2014-24067

PATIENT
  Age: 67 Year
  Sex: Female

DRUGS (2)
  1. MOXIFLOXACIN [Interacting]
     Active Substance: MOXIFLOXACIN
     Indication: PRODUCT USED FOR UNKNOWN INDICATION
     Route: 065
  2. XENAZINE [Suspect]
     Active Substance: TETRABENAZINE
     Indication: DYSKINESIA
     Route: 048
     Dates: start: 20130727

REACTIONS (7)
  - Palpitations [Unknown]
  - Amnesia [Unknown]
  - Fall [Recovering/Resolving]
  - Drug interaction [Unknown]
  - Cardiac flutter [Unknown]
  - Off label use [Not Recovered/Not Resolved]
  - Concussion [Recovering/Resolving]

NARRATIVE: CASE EVENT DATE: 20130727
